FAERS Safety Report 5443433-7 (Version None)
Quarter: 2007Q3

REPORT INFORMATION
  Report Type: 
  Country: None (occurrence: None)
  Receive Date: 20070905
  Receipt Date: 20070828
  Transmission Date: 20080115
  Serious: Yes (Hospitalization)
  Sender: FDA-Public Use
  Company Number: B0485400A

PATIENT
  Age: 70 Year
  Sex: Male

DRUGS (14)
  1. ARTIST [Suspect]
     Dosage: 2.5MG TWICE PER DAY
     Route: 048
     Dates: start: 20070515, end: 20070613
  2. LEVOFLOXACIN [Suspect]
     Indication: PNEUMONIA
     Dosage: 100MG THREE TIMES PER DAY
     Route: 048
     Dates: start: 20070519, end: 20070522
  3. LANSOPRAZOLE [Suspect]
     Indication: DRUG USE FOR UNKNOWN INDICATION
     Route: 048
     Dates: start: 20070511, end: 20070613
  4. RENIVACE [Suspect]
     Indication: DRUG USE FOR UNKNOWN INDICATION
     Dosage: 5MG PER DAY
     Route: 048
     Dates: start: 20070506, end: 20070613
  5. TICLOPIDINE HCL [Concomitant]
  6. LASIX [Concomitant]
  7. GRAMALIL [Concomitant]
     Dates: start: 20070515, end: 20070613
  8. ASPIRIN [Concomitant]
     Dates: start: 20070428, end: 20070613
  9. DEPAS [Concomitant]
     Dates: start: 20070428, end: 20070613
  10. AMLODIPINE [Concomitant]
     Dates: start: 20070509, end: 20070613
  11. FRANDOL [Concomitant]
     Dates: start: 20070509
  12. MAGMITT [Concomitant]
     Dates: start: 20070509, end: 20070613
  13. BIOFERMIN [Concomitant]
     Dates: start: 20070514, end: 20070613
  14. ALDACTONE [Concomitant]
     Dates: start: 20070514, end: 20070613

REACTIONS (1)
  - INTERSTITIAL LUNG DISEASE [None]
